FAERS Safety Report 7844820-X (Version None)
Quarter: 2011Q4

REPORT INFORMATION
  Report Type: 
  Country: None (occurrence: None)
  Receive Date: 20111025
  Receipt Date: 20111018
  Transmission Date: 20120403
  Serious: Yes (Death, Hospitalization)
  Sender: FDA-Public Use
  Company Number: US-GLAXOSMITHKLINE-A0950111A

PATIENT
  Age: 52 Year
  Sex: Male

DRUGS (2)
  1. MULTIPLE MEDICATIONS [Concomitant]
  2. FLOVENT [Suspect]
     Indication: DYSPNOEA
     Dosage: 660MCG PER DAY
     Route: 055
     Dates: start: 20110101

REACTIONS (3)
  - PNEUMONIA [None]
  - DISEASE COMPLICATION [None]
  - ACUTE LYMPHOCYTIC LEUKAEMIA [None]
